FAERS Safety Report 6035375-3 (Version None)
Quarter: 2009Q1

REPORT INFORMATION
  Report Type: 
  Country: None (occurrence: None)
  Receive Date: 20090112
  Receipt Date: 20090112
  Transmission Date: 20090719
  Serious: No
  Sender: FDA-Public Use
  Company Number: None

PATIENT

DRUGS (1)
  1. MORPHINE SULFATE [Suspect]
     Dosage: 15 MG

REACTIONS (8)
  - CONCUSSION [None]
  - DIZZINESS [None]
  - FALL [None]
  - FEAR [None]
  - GAIT DISTURBANCE [None]
  - HEAD INJURY [None]
  - PRODUCT QUALITY ISSUE [None]
  - SYNCOPE [None]
